FAERS Safety Report 13011142 (Version 4)
Quarter: 2017Q2

REPORT INFORMATION
  Report Type: Spontaneous
  Country: US (occurrence: US)
  Receive Date: 20161208
  Receipt Date: 20170511
  Transmission Date: 20170830
  Serious: Yes (Other)
  Sender: FDA-Public Use
  Company Number: PHEH2016US032052

PATIENT
  Sex: Female
  Weight: 55.33 kg

DRUGS (2)
  1. ZOFRAN [Suspect]
     Active Substance: ONDANSETRON HYDROCHLORIDE
     Indication: PRODUCT USED FOR UNKNOWN INDICATION
     Route: 048
  2. ZOFRAN ODT [Suspect]
     Active Substance: ONDANSETRON HYDROCHLORIDE
     Indication: VOMITING IN PREGNANCY
     Dosage: 4 MG, BID
     Route: 048
     Dates: start: 20131125

REACTIONS (23)
  - Chest discomfort [Unknown]
  - Urethritis [Unknown]
  - Sinus tachycardia [Unknown]
  - Urinary tract infection [Unknown]
  - Maternal exposure during pregnancy [Unknown]
  - Emotional distress [Unknown]
  - Vaginal discharge [Unknown]
  - Candida infection [Unknown]
  - Product use in unapproved indication [Unknown]
  - Arthralgia [Unknown]
  - Transient ischaemic attack [Unknown]
  - Uterine leiomyoma [Unknown]
  - Injury [Unknown]
  - Vision blurred [Unknown]
  - Amnesia [Unknown]
  - Leukocytosis [Unknown]
  - Headache [Unknown]
  - Abdominal pain [Unknown]
  - Intervertebral disc protrusion [Unknown]
  - Fungal infection [Unknown]
  - Dysuria [Unknown]
  - Dysarthria [Unknown]
  - Palpitations [Unknown]
